FAERS Safety Report 20851152 (Version 1)
Quarter: 2022Q2

REPORT INFORMATION
  Report Type: Report from Study
  Country: US (occurrence: US)
  Receive Date: 20220519
  Receipt Date: 20220519
  Transmission Date: 20220720
  Serious: Yes (Other)
  Sender: FDA-Public Use
  Company Number: US-ALLERGAN-2215530US

PATIENT
  Sex: Female
  Weight: 133.79 kg

DRUGS (21)
  1. VILAZODONE HYDROCHLORIDE [Suspect]
     Active Substance: VILAZODONE HYDROCHLORIDE
     Indication: Depression
     Dosage: ACTUAL: 80MG (TWO 40MG TABLETS) ONCE DAILY AT NIGHT
     Route: 048
  2. VILAZODONE HYDROCHLORIDE [Suspect]
     Active Substance: VILAZODONE HYDROCHLORIDE
     Indication: Hallucination, auditory
  3. SYNTHROID [Suspect]
     Active Substance: LEVOTHYROXINE SODIUM
     Indication: Hypothyroidism
     Dosage: 88 ?G, QD
     Route: 048
     Dates: start: 2012
  4. SYNTHROID [Suspect]
     Active Substance: LEVOTHYROXINE SODIUM
     Dosage: 75 ?G, QD
     Route: 048
     Dates: start: 2010, end: 2012
  5. BOTOX [Concomitant]
     Active Substance: ONABOTULINUMTOXINA
     Indication: Migraine
     Dosage: UP TO 200 UNITS TO HEAD AND NECK
     Route: 030
  6. QULIPTA [Concomitant]
     Active Substance: ATOGEPANT
     Indication: Migraine
     Dosage: 60 MG, QD
     Route: 048
     Dates: start: 20220429
  7. TIZANIDINE [Concomitant]
     Active Substance: TIZANIDINE
     Indication: Muscle spasms
  8. LISINOPRIL [Concomitant]
     Active Substance: LISINOPRIL
     Indication: Hypertension
  9. PANTOPRAZOLE [Concomitant]
     Active Substance: PANTOPRAZOLE
     Indication: Dyspepsia
  10. LORATADINE [Concomitant]
     Active Substance: LORATADINE
     Indication: Hypersensitivity
  11. ZYRTEC [Concomitant]
     Active Substance: CETIRIZINE HYDROCHLORIDE
     Indication: Hypersensitivity
  12. ERGOCALCIFEROL [Concomitant]
     Active Substance: ERGOCALCIFEROL
     Indication: Vitamin D decreased
     Dosage: 1 CAPSULE TWO TIMES A WEEK ON WEDNESDAY AND SUNDAY
     Route: 048
     Dates: start: 20211230
  13. OXYCODONE [Concomitant]
     Active Substance: OXYCODONE
     Indication: Pain
  14. XTAMPZA [Concomitant]
     Active Substance: OXYCODONE
     Indication: Pain
  15. ROPINIROLE [Concomitant]
     Active Substance: ROPINIROLE
     Indication: Restless legs syndrome
  16. LYRICA [Concomitant]
     Active Substance: PREGABALIN
     Indication: Neuralgia
  17. FUROSEMIDE [Concomitant]
     Active Substance: FUROSEMIDE
     Indication: Oedema
     Dosage: 20 MG, PRN
     Route: 048
     Dates: start: 20220121
  18. OMEPRAZOLE [Concomitant]
     Active Substance: OMEPRAZOLE
     Dosage: 40 MG, BID
     Route: 048
     Dates: start: 20220208
  19. TRAZODONE [Concomitant]
     Active Substance: TRAZODONE HYDROCHLORIDE
     Dosage: ACTUAL: ONE TO TWO PILLS ONE HOUR BEFORE BEDTIME
     Route: 048
     Dates: start: 20201207
  20. ZANAFLEX [Concomitant]
     Active Substance: TIZANIDINE HYDROCHLORIDE
     Dosage: 4 MG, TID
     Route: 048
     Dates: start: 20220208
  21. HYDROCORTISONE [Concomitant]
     Active Substance: HYDROCORTISONE
     Indication: Haemorrhoids
     Dosage: APPLY TO AFFECTED AREATWO TIMES DAILY
     Route: 061
     Dates: start: 20210615

REACTIONS (18)
  - Hypertension [Not Recovered/Not Resolved]
  - Hysterectomy [Unknown]
  - Hallucination, auditory [Not Recovered/Not Resolved]
  - Tooth extraction [Unknown]
  - Hot flush [Not Recovered/Not Resolved]
  - Skin irritation [Not Recovered/Not Resolved]
  - Feeling abnormal [Not Recovered/Not Resolved]
  - Weight decreased [Not Recovered/Not Resolved]
  - Erythema [Not Recovered/Not Resolved]
  - Pruritus [Unknown]
  - Influenza like illness [Not Recovered/Not Resolved]
  - Crying [Not Recovered/Not Resolved]
  - Anger [Not Recovered/Not Resolved]
  - Therapy interrupted [Unknown]
  - Product dose omission issue [Unknown]
  - Mood swings [Not Recovered/Not Resolved]
  - Rash [Unknown]
  - Night sweats [Not Recovered/Not Resolved]

NARRATIVE: CASE EVENT DATE: 20210101
